FAERS Safety Report 18693819 (Version 1)
Quarter: 2021Q1

REPORT INFORMATION
  Report Type: Spontaneous
  Country: FR (occurrence: FR)
  Receive Date: 20210104
  Receipt Date: 20210104
  Transmission Date: 20210419
  Serious: Yes (Hospitalization)
  Sender: FDA-Public Use
  Company Number: FR-BAUSCH-BL-2020-038651

PATIENT
  Age: 62 Year
  Sex: Male
  Weight: 62 kg

DRUGS (7)
  1. CHIBRO CADRON [Suspect]
     Active Substance: DEXAMETHASONE SODIUM PHOSPHATE\NEOMYCIN SULFATE
     Indication: CHORIORETINITIS
     Route: 047
     Dates: start: 20201027, end: 20201205
  2. ATROPINE. [Suspect]
     Active Substance: ATROPINE
     Indication: CHORIORETINITIS
     Route: 047
  3. IMIPENEM ANHYDRE [Suspect]
     Active Substance: IMIPENEM
     Indication: ENDOPHTHALMITIS
     Route: 041
     Dates: start: 20201027, end: 20201104
  4. MEROPENEM ANHYDRE [Suspect]
     Active Substance: MEROPENEM
     Indication: CHORIORETINITIS
     Route: 041
     Dates: start: 20201104, end: 20201205
  5. CILASTATINE ANHYDRE [Suspect]
     Active Substance: CILASTATIN
     Indication: ENDOPHTHALMITIS
     Route: 041
     Dates: start: 20201027, end: 20201104
  6. ARTELAC [HYPROMELLOSE] [Suspect]
     Active Substance: HYPROMELLOSES
     Indication: CHORIORETINITIS
     Route: 047
     Dates: start: 20201027, end: 20201205
  7. LEVOFLOXACINE [Suspect]
     Active Substance: LEVOFLOXACIN
     Indication: CHORIORETINITIS
     Route: 041
     Dates: start: 20201027, end: 20201205

REACTIONS (1)
  - Toxic epidermal necrolysis [Not Recovered/Not Resolved]

NARRATIVE: CASE EVENT DATE: 20201127
